FAERS Safety Report 9729674 (Version 2)
Quarter: 2013Q4

REPORT INFORMATION
  Report Type: Spontaneous
  Country: US (occurrence: US)
  Receive Date: 20131204
  Receipt Date: 20131204
  Transmission Date: 20140711
  Serious: No
  Sender: FDA-Public Use
  Company Number: US-GILEAD-2009-0020883

PATIENT
  Sex: Female
  Weight: 77.11 kg

DRUGS (10)
  1. LETAIRIS [Suspect]
     Indication: PULMONARY ARTERIAL HYPERTENSION
     Route: 048
     Dates: start: 20090304
  2. REVATIO [Concomitant]
  3. LASIX [Concomitant]
  4. ASPIRIN [Concomitant]
  5. NORVASC [Concomitant]
  6. LISINOPRIL [Concomitant]
  7. ATENOLOL [Concomitant]
  8. KLOR-CON [Concomitant]
  9. NEXIUM [Concomitant]
  10. ALLOPURINOL [Concomitant]

REACTIONS (1)
  - Swelling [Unknown]
